FAERS Safety Report 20778283 (Version 1)
Quarter: 2022Q2

REPORT INFORMATION
  Report Type: Spontaneous
  Country: AU (occurrence: AU)
  Receive Date: 20220503
  Receipt Date: 20220503
  Transmission Date: 20220721
  Serious: Yes (Other)
  Sender: FDA-Public Use
  Company Number: AU-Atnahs Limited-ATNAHS20220405384

PATIENT
  Age: 50 Year
  Sex: Female

DRUGS (3)
  1. VALIUM [Suspect]
     Active Substance: DIAZEPAM
     Indication: Product used for unknown indication
  2. SPIKEVAX [Suspect]
     Active Substance: ELASOMERAN
     Indication: Product used for unknown indication
  3. SPIKEVAX [Suspect]
     Active Substance: ELASOMERAN
     Indication: COVID-19 immunisation

REACTIONS (10)
  - Seizure [Unknown]
  - Angioedema [Not Recovered/Not Resolved]
  - Arthralgia [Recovered/Resolved]
  - Chills [Recovered/Resolved]
  - Confusional state [Recovered/Resolved]
  - Fatigue [Not Recovered/Not Resolved]
  - Oropharyngeal pain [Unknown]
  - Photopsia [Recovered/Resolved]
  - Pollakiuria [Recovered/Resolved]
  - Polyuria [Recovered/Resolved]

NARRATIVE: CASE EVENT DATE: 20211222
